FAERS Safety Report 8440421-3 (Version None)
Quarter: 2012Q2

REPORT INFORMATION
  Report Type: 
  Country: None (occurrence: None)
  Receive Date: 20120615
  Receipt Date: 20120606
  Transmission Date: 20120825
  Serious: Yes (Hospitalization, Other)
  Sender: FDA-Public Use
  Company Number: US-ASTRAZENECA-2012SE38387

PATIENT
  Age: 43 Year
  Sex: Male

DRUGS (3)
  1. PROCARDIA XL [Concomitant]
  2. CRESTOR [Suspect]
     Route: 048
  3. VITAMIN D [Concomitant]

REACTIONS (4)
  - PERICARDIAL EFFUSION [None]
  - PALPITATIONS [None]
  - CREST SYNDROME [None]
  - PULMONARY HYPERTENSION [None]
